FAERS Safety Report 9129372 (Version 1)
Quarter: 2013Q1

REPORT INFORMATION
  Report Type: Other
  Country: US (occurrence: US)
  Receive Date: 20130125
  Receipt Date: 20130125
  Transmission Date: 20140127
  Serious: Yes (Death)
  Sender: FDA-Public Use
  Company Number: US-FRI-1000041989

PATIENT
  Age: 54 Year
  Sex: Male

DRUGS (7)
  1. DILTIAZEM [Suspect]
  2. ACETAMINOPHEN [Suspect]
  3. SKELETAL MUSCLE RELAXANT [Suspect]
  4. HYDROCODONE [Suspect]
  5. HYDROMORPHONE [Suspect]
  6. LORAZEPAM [Suspect]
  7. MIDAZOLAM [Suspect]

REACTIONS (1)
  - Intentional drug misuse [Fatal]
